FAERS Safety Report 5374575-2 (Version None)
Quarter: 2007Q2

REPORT INFORMATION
  Report Type: 
  Country: None (occurrence: None)
  Receive Date: 20070625
  Receipt Date: 20070130
  Transmission Date: 20071010
  Serious: Yes (Hospitalization)
  Sender: FDA-Public Use
  Company Number: SU-2007-005859

PATIENT
  Age: 63 Year
  Sex: Female
  Weight: 132.4 kg

DRUGS (4)
  1. BENICAR [Suspect]
     Indication: HYPERTENSION
     Dosage: (MG), PER ORAL
     Route: 048
     Dates: start: 20061127
  2. WARFARIN SODIUM [Suspect]
     Indication: DRUG USE FOR UNKNOWN INDICATION
     Dosage: 8 MG (8 MG, ONCE A DAY), UNKNOWN
     Dates: start: 20060504
  3. LASIX [Suspect]
     Indication: DRUG USE FOR UNKNOWN INDICATION
     Dosage: (MG, UNKNOWN), PER ORAL
     Route: 048
     Dates: start: 20061127
  4. GLUCOPHAGE [Suspect]
     Indication: DRUG USE FOR UNKNOWN INDICATION
     Dosage: (MG, UNKNOWN), PER ORAL
     Route: 048
     Dates: start: 20061127

REACTIONS (1)
  - RENAL FAILURE ACUTE [None]
